FAERS Safety Report 6521248-6 (Version None)
Quarter: 2009Q4

REPORT INFORMATION
  Report Type: 
  Country: None (occurrence: None)
  Receive Date: 20091230
  Receipt Date: 20091223
  Transmission Date: 20100525
  Serious: Yes (Hospitalization)
  Sender: FDA-Public Use
  Company Number: US-BIOGENIDEC-2009BI041626

PATIENT
  Age: 55 Year
  Sex: Female
  Weight: 65 kg

DRUGS (20)
  1. TYSABRI [Suspect]
     Indication: MULTIPLE SCLEROSIS
     Route: 042
     Dates: start: 20080110
  2. ACTONEL [Concomitant]
     Indication: OSTEOPOROSIS
     Route: 048
  3. AMBIEN [Concomitant]
     Indication: SLEEP PHASE RHYTHM DISTURBANCE
  4. BACLOFEN [Concomitant]
     Indication: MUSCLE SPASTICITY
  5. CLARITIN [Concomitant]
  6. COLACE [Concomitant]
  7. COUMADIN [Concomitant]
     Indication: DEEP VEIN THROMBOSIS
  8. CIPRO [Concomitant]
     Indication: CELLULITIS
     Route: 048
  9. GENTAMICIN [Concomitant]
     Indication: CELLULITIS
  10. LASIX [Concomitant]
  11. LEXAPRO [Concomitant]
     Indication: DEPRESSION
  12. NEXIUM [Concomitant]
  13. NORCO [Concomitant]
  14. NOVAGEL [Concomitant]
  15. PERCOCET [Concomitant]
  16. SINEQUAN [Concomitant]
     Indication: DEPRESSION
  17. WELLBUTRIN [Concomitant]
     Indication: DEPRESSION
  18. XANAX [Concomitant]
     Indication: ANXIETY
  19. XANAX [Concomitant]
     Indication: DEPRESSION
  20. FLORASTOR [Concomitant]

REACTIONS (1)
  - CELLULITIS [None]
